FAERS Safety Report 10207708 (Version 1)
Quarter: 2014Q2

REPORT INFORMATION
  Report Type: Spontaneous
  Country: FR (occurrence: None)
  Receive Date: 20140527
  Receipt Date: 20140527
  Transmission Date: 20141212
  Serious: Yes (Other)
  Sender: FDA-Public Use
  Company Number: 2014137034

PATIENT
  Age: 63 Year
  Sex: Male

DRUGS (1)
  1. FRAGMINE (DALTEPARIN SODIUM) SOLUTION FOR INJECTION [Suspect]
     Dosage: 5000 ANTI XA/0.2 ML, 2X/DAY, SUBCUTANEOUS
     Route: 058
     Dates: start: 20131219, end: 20131223

REACTIONS (2)
  - Eczema [None]
  - Drug eruption [None]
